FAERS Safety Report 26115368 (Version 1)
Quarter: 2025Q4

REPORT INFORMATION
  Report Type: Report from Study
  Country: US (occurrence: None)
  Receive Date: 20251203
  Receipt Date: 20251203
  Transmission Date: 20260117
  Serious: Yes (Other)
  Sender: UCB
  Company Number: US-UCBSA-2025029314

PATIENT

DRUGS (1)
  1. FENFLURAMINE HYDROCHLORIDE [Suspect]
     Active Substance: FENFLURAMINE HYDROCHLORIDE
     Indication: Seizure
     Dosage: UNK

REACTIONS (4)
  - Seizure [Unknown]
  - Pulmonary hypertension [Unknown]
  - Cardiomyopathy [Unknown]
  - Drug ineffective [Unknown]
